FAERS Safety Report 6163796-7 (Version None)
Quarter: 2009Q2

REPORT INFORMATION
  Report Type: 
  Country: None (occurrence: None)
  Receive Date: 20090420
  Receipt Date: 20090420
  Transmission Date: 20091009
  Serious: Yes (Life-Threatening)
  Sender: FDA-Public Use
  Company Number: None

PATIENT
  Age: 53 Year
  Sex: Male
  Weight: 136.0791 kg

DRUGS (9)
  1. LIPITOR [Suspect]
     Indication: BLOOD CHOLESTEROL INCREASED
     Dosage: 20MG QD PO
     Route: 048
     Dates: start: 20080404, end: 20080501
  2. SIMVASTATIN [Suspect]
     Dosage: 20MG QD PO
     Route: 048
     Dates: start: 20090201, end: 20090404
  3. ACTOS [Concomitant]
  4. METFORMIN HCL [Concomitant]
  5. ASACOL [Concomitant]
  6. AMITRIPTYLINE HCL [Concomitant]
  7. GABAPENTIN [Concomitant]
  8. HYDROXYZINE [Concomitant]
  9. VICODIN [Concomitant]

REACTIONS (3)
  - GINGIVAL PAIN [None]
  - ORAL PAIN [None]
  - SKIN EXFOLIATION [None]
